FAERS Safety Report 5356558-1 (Version None)
Quarter: 2007Q2

REPORT INFORMATION
  Report Type: 
  Country: None (occurrence: None)
  Receive Date: 20070531
  Receipt Date: 20070315
  Transmission Date: 20071010
  Serious: Yes (Other)
  Sender: FDA-Public Use
  Company Number: 487913

PATIENT
  Age: 25 Year
  Sex: Male
  Weight: 77.1 kg

DRUGS (2)
  1. MEFLOQUINE HYDROCHLORIDE [Suspect]
     Indication: MALARIA PROPHYLAXIS
     Dosage: 250 MG 1 PER WEEK ORAL
     Route: 048
     Dates: start: 20061215, end: 20070127
  2. ZITHROMAX [Concomitant]

REACTIONS (7)
  - DEPRESSION [None]
  - DISTURBANCE IN ATTENTION [None]
  - HEADACHE [None]
  - HYPOAESTHESIA [None]
  - MEMORY IMPAIRMENT [None]
  - PARANOIA [None]
  - SPEECH DISORDER [None]
